FAERS Safety Report 13129696 (Version 3)
Quarter: 2017Q2

REPORT INFORMATION
  Report Type: Spontaneous
  Country: US (occurrence: US)
  Receive Date: 20170119
  Receipt Date: 20170403
  Transmission Date: 20170830
  Serious: Yes (Other)
  Sender: FDA-Public Use
  Company Number: US-PFIZER INC-2017018006

PATIENT
  Age: 40 Year
  Sex: Male

DRUGS (6)
  1. TAMSULOSIN [Concomitant]
     Active Substance: TAMSULOSIN
     Dosage: 0.4 MG, 2X/DAY
  2. OXYCODONE [Concomitant]
     Active Substance: OXYCODONE
     Dosage: 15 MG, AS NEEDED UP TO 4X DAILY
  3. FLUTICASONE. [Concomitant]
     Active Substance: FLUTICASONE
     Dosage: 50 UG, 1X/DAY
  4. VFEND [Suspect]
     Active Substance: VORICONAZOLE
     Indication: SINUSITIS FUNGAL
     Dosage: 200 MG, 2X/DAY
     Dates: start: 201601
  5. VFEND [Suspect]
     Active Substance: VORICONAZOLE
     Indication: FUSARIUM INFECTION
     Dosage: 200 MG, 2X/DAY
     Dates: start: 201701
  6. MORPHINE SULFATE. [Concomitant]
     Active Substance: MORPHINE SULFATE
     Dosage: 30 MG, UNK

REACTIONS (3)
  - Respiratory tract infection [Unknown]
  - Fungal infection [Recovered/Resolved]
  - Atypical mycobacterial infection [Unknown]

NARRATIVE: CASE EVENT DATE: 201612
